FAERS Safety Report 8262228-2 (Version None)
Quarter: 2012Q2

REPORT INFORMATION
  Report Type: 
  Country: None (occurrence: None)
  Receive Date: 20120405
  Receipt Date: 20120323
  Transmission Date: 20120825
  Serious: Yes (Other)
  Sender: FDA-Public Use
  Company Number: HU-MYLANLABS-2012S1006265

PATIENT
  Age: 57 Year
  Sex: Male

DRUGS (4)
  1. PROPAFENONE HCL [Concomitant]
     Indication: ATRIAL FIBRILLATION
     Dates: start: 20120207
  2. WARFARIN SODIUM [Suspect]
     Indication: ATRIAL FIBRILLATION
     Dosage: 5 MG AND 7.5 MG RESPECTIVELY
     Route: 048
     Dates: start: 20110221, end: 20120312
  3. DIOVAN [Concomitant]
     Indication: HYPERTENSION
     Dates: start: 20120207
  4. BISOPROLOL FUMARATE [Concomitant]
     Indication: ATRIAL FIBRILLATION
     Dates: start: 20120207

REACTIONS (1)
  - TOXIC SKIN ERUPTION [None]
